FAERS Safety Report 18437250 (Version 1)
Quarter: 2020Q4

REPORT INFORMATION
  Report Type: Spontaneous
  Country: US (occurrence: US)
  Receive Date: 20201028
  Receipt Date: 20201028
  Transmission Date: 20210114
  Serious: Yes (Other)
  Sender: FDA-Public Use
  Company Number: US-LANNETT COMPANY, INC.-US-2020LAN000268

PATIENT
  Age: 8 Year
  Sex: Male

DRUGS (2)
  1. TERBUTALINE SULFATE. [Suspect]
     Active Substance: TERBUTALINE SULFATE
     Indication: PRODUCT USED FOR UNKNOWN INDICATION
     Dosage: UNK
     Route: 064
     Dates: start: 2007
  2. TERBUTALINE [Suspect]
     Active Substance: TERBUTALINE
     Indication: PRODUCT USED FOR UNKNOWN INDICATION
     Dosage: UNK
     Route: 064
     Dates: start: 20071026

REACTIONS (8)
  - Anxiety disorder [Unknown]
  - Foetal exposure during pregnancy [Unknown]
  - Oppositional defiant disorder [Unknown]
  - Autism spectrum disorder [Unknown]
  - Social anxiety disorder [Unknown]
  - Disruptive mood dysregulation disorder [Unknown]
  - Bipolar disorder [Unknown]
  - Separation anxiety disorder [Unknown]

NARRATIVE: CASE EVENT DATE: 200710
